FAERS Safety Report 7558859-5 (Version None)
Quarter: 2011Q2

REPORT INFORMATION
  Report Type: 
  Country: None (occurrence: None)
  Receive Date: 20110613
  Receipt Date: 20110527
  Transmission Date: 20111010
  Serious: Yes (Hospitalization, Congenital Anomaly, Other)
  Sender: FDA-Public Use
  Company Number: AUR-APL-2011-02111

PATIENT
  Sex: Female
  Weight: 2.49 kg

DRUGS (5)
  1. ESCITALOPRAM [Suspect]
     Dosage: 10MG-DAILY-TRANSPLACENT
     Dates: start: 20091001, end: 20091201
  2. ACETAMINOPHEN [Concomitant]
  3. AUGMENTAN (AMOXICILLIN/CLAVULANATE) [Concomitant]
  4. MIRTAZAPINE [Suspect]
     Indication: DEPRESSION
     Dosage: 30-15MG -DAILY-TRANSPLA
     Route: 064
     Dates: start: 20091001, end: 20100612
  5. FOLIO FORTE (FOLIC ACID) [Concomitant]

REACTIONS (7)
  - HAEMANGIOMA CONGENITAL [None]
  - PREMATURE BABY [None]
  - FEEDING DISORDER NEONATAL [None]
  - PRE-ECLAMPSIA [None]
  - MATERNAL DRUGS AFFECTING FOETUS [None]
  - HYPERBILIRUBINAEMIA NEONATAL [None]
  - CAESAREAN SECTION [None]
